FAERS Safety Report 8176576-8 (Version None)
Quarter: 2012Q1

REPORT INFORMATION
  Report Type: 
  Country: None (occurrence: None)
  Receive Date: 20120228
  Receipt Date: 20120210
  Transmission Date: 20120608
  Serious: Yes (Other)
  Sender: FDA-Public Use
  Company Number: JPI-P-019802

PATIENT
  Age: 39 Year
  Sex: Female
  Weight: 113.3993 kg

DRUGS (3)
  1. XYREM [Suspect]
     Indication: CATAPLEXY
     Dosage: ORAL ; 9 GM (4.5 GM,2 IN 1 D),ORAL
     Route: 048
     Dates: start: 20070913
  2. MULTIPLE UNSPECIFIED MEDICATIONS [Concomitant]
  3. TOLTERODINE TARTRATE [Concomitant]

REACTIONS (10)
  - NOCTURIA [None]
  - CONDITION AGGRAVATED [None]
  - MIDDLE INSOMNIA [None]
  - MICTURITION URGENCY [None]
  - APALLIC SYNDROME [None]
  - BREAST NEOPLASM [None]
  - ENURESIS [None]
  - FAECAL INCONTINENCE [None]
  - AUTONOMIC NERVOUS SYSTEM IMBALANCE [None]
  - SPINAL COLUMN STENOSIS [None]
